FAERS Safety Report 11771253 (Version 1)
Quarter: 2015Q4

REPORT INFORMATION
  Report Type: Spontaneous
  Country: GB (occurrence: GB)
  Receive Date: 20151124
  Receipt Date: 20151124
  Transmission Date: 20160304
  Serious: Yes (Other)
  Sender: FDA-Public Use
  Company Number: GB-ACCORD-035530

PATIENT
  Age: 70 Year
  Sex: Female
  Weight: 64 kg

DRUGS (6)
  1. CODEINE [Concomitant]
     Active Substance: CODEINE
     Dates: start: 20140911
  2. PLANTAGO OVATA [Concomitant]
     Active Substance: PLANTAGO OVATA LEAF
     Dates: start: 20140911, end: 20150821
  3. TAFLUPROST [Concomitant]
     Active Substance: TAFLUPROST
     Dates: start: 20140911, end: 20150821
  4. AMITRIPTYLINE [Suspect]
     Active Substance: AMITRIPTYLINE
     Indication: PRODUCT USED FOR UNKNOWN INDICATION
     Dates: start: 20151029
  5. MACROGOL/MACROGOL STEARATE [Concomitant]
     Dosage: USE AS DIRECTED.
     Dates: start: 20150821
  6. REFRESH OPTIVE [Concomitant]
     Active Substance: CARBOXYMETHYLCELLULOSE SODIUM\GLYCERIN
     Dosage: USE AS DIRECTED
     Dates: start: 20140911, end: 20150821

REACTIONS (7)
  - Abdominal pain upper [Unknown]
  - Muscle spasms [Unknown]
  - Dry mouth [Unknown]
  - Abnormal dreams [Unknown]
  - Vision blurred [Unknown]
  - Swollen tongue [Recovered/Resolved]
  - Diarrhoea [Unknown]

NARRATIVE: CASE EVENT DATE: 20151029
